FAERS Safety Report 6388700-8 (Version None)
Quarter: 2009Q4

REPORT INFORMATION
  Report Type: 
  Country: None (occurrence: None)
  Receive Date: 20091001
  Receipt Date: 20090923
  Transmission Date: 20100525
  Serious: Yes (Other)
  Sender: FDA-Public Use
  Company Number: GRP09000081

PATIENT
  Age: 68 Year
  Sex: Female

DRUGS (2)
  1. ACTONEL [Suspect]
     Dosage: 35 MG, 1/WEEK, ORAL
     Route: 048
     Dates: start: 20090501, end: 20090901
  2. IDEOS /00108001/ (CALCIUM CARBONATE) [Concomitant]

REACTIONS (1)
  - UTERINE CANCER [None]
